FAERS Safety Report 25880874 (Version 1)
Quarter: 2025Q4

REPORT INFORMATION
  Report Type: Report from Study
  Country: CA (occurrence: CA)
  Receive Date: 20251004
  Receipt Date: 20251004
  Transmission Date: 20260119
  Serious: Yes (Hospitalization)
  Sender: ABBVIE
  Company Number: CA-ABBVIE-6485882

PATIENT
  Age: 46 Year
  Sex: Female

DRUGS (1)
  1. SKYRIZI [Suspect]
     Active Substance: RISANKIZUMAB-RZAA
     Indication: Colitis ulcerative
     Dosage: FORM STRENGTH 360MG/2.4ML AT WEEK 12 THEREAFTER USING ONBODY INJECTOR
     Route: 058

REACTIONS (3)
  - Tubo-ovarian abscess [Unknown]
  - Abdominal pain [Unknown]
  - Pelvic mass [Unknown]

NARRATIVE: CASE EVENT DATE: 20250823
